FAERS Safety Report 5008461-4 (Version None)
Quarter: 2006Q2

REPORT INFORMATION
  Report Type: 
  Country: None (occurrence: None)
  Receive Date: 20060518
  Receipt Date: 20060502
  Transmission Date: 20061013
  Serious: Yes (Hospitalization)
  Sender: FDA-Public Use
  Company Number: JP200604003452

PATIENT
  Age: 75 Year
  Sex: Female
  Weight: 48 kg

DRUGS (4)
  1. EVISTA [Suspect]
     Indication: OSTEOPOROSIS
     Dosage: ORAL
     Route: 048
     Dates: start: 20050101, end: 20051001
  2. EVISTA [Suspect]
     Indication: OSTEOPOROSIS
     Dosage: ORAL
     Route: 048
     Dates: start: 20051101
  3. MEVALOTIN /JPN/ (PRAVASTATIN SODIUM) [Concomitant]
  4. BUFFERIN /JPN/ (ACETYLSALICYLIC ACID, ALUMINIUM GLYCINATE) [Concomitant]

REACTIONS (2)
  - ABDOMINAL WALL ABSCESS [None]
  - STITCH ABSCESS [None]
